FAERS Safety Report 10576286 (Version 1)
Quarter: 2014Q4

REPORT INFORMATION
  Report Type: Spontaneous
  Country: JP (occurrence: None)
  Receive Date: 20141107
  Receipt Date: 20141107
  Transmission Date: 20150529
  Serious: Yes (Other)
  Sender: FDA-Public Use
  Company Number: A201309623

PATIENT
  Age: 46 Year
  Sex: Male
  Weight: 59 kg

DRUGS (6)
  1. ADEFOVIR DIPIVOXIL. [Suspect]
     Active Substance: ADEFOVIR DIPIVOXIL
     Indication: CHRONIC HEPATITIS B
     Dates: start: 1998
  2. LAMIVUDINE. [Suspect]
     Active Substance: LAMIVUDINE
     Indication: CHRONIC HEPATITIS B
     Route: 048
  3. GAMOFA (FAMOTIDINE) [Concomitant]
  4. LIVACT (ISOLEUCINE + LEUCINE + VALINE) [Concomitant]
  5. FUROSEMIDE. [Concomitant]
     Active Substance: FUROSEMIDE
  6. URSO (URSODEOXYCHOLIC ACID) TABLET [Concomitant]

REACTIONS (24)
  - Glucose urine present [None]
  - Pain [None]
  - Hypokalaemia [None]
  - Tibia fracture [None]
  - Osteomalacia [None]
  - Renal impairment [None]
  - Chest pain [None]
  - Arthralgia [None]
  - Proteinuria [None]
  - Multiple fractures [None]
  - Hepatocellular carcinoma [None]
  - Musculoskeletal pain [None]
  - Hypophosphataemia [None]
  - Back pain [None]
  - Gait disturbance [None]
  - Bone pain [None]
  - Pathological fracture [None]
  - Bone marrow failure [None]
  - Blood alkaline phosphatase increased [None]
  - Vitamin D decreased [None]
  - Fanconi syndrome [None]
  - Pelvic fracture [None]
  - Fractured sacrum [None]
  - Urine phosphorus decreased [None]

NARRATIVE: CASE EVENT DATE: 200302
